FAERS Safety Report 11221255 (Version 2)
Quarter: 2015Q3

REPORT INFORMATION
  Report Type: Report from Study
  Country: US (occurrence: US)
  Receive Date: 20150626
  Receipt Date: 20150723
  Transmission Date: 20151125
  Serious: Yes (Other)
  Sender: FDA-Public Use
  Company Number: US-BIOGENIDEC-2015BI083825

PATIENT
  Sex: Female
  Weight: 75 kg

DRUGS (14)
  1. DILAUDID [Concomitant]
     Active Substance: HYDROMORPHONE HYDROCHLORIDE
  2. MS CONTIN [Concomitant]
     Active Substance: MORPHINE SULFATE
  3. ZOLOFT [Concomitant]
     Active Substance: SERTRALINE HYDROCHLORIDE
  4. VALIUM [Concomitant]
     Active Substance: DIAZEPAM
  5. FAMOTIDINE. [Concomitant]
     Active Substance: FAMOTIDINE
  6. AMBIEN [Concomitant]
     Active Substance: ZOLPIDEM TARTRATE
  7. VITAMIN B12 [Concomitant]
     Active Substance: CYANOCOBALAMIN
  8. NORTRIPTYLINE [Concomitant]
     Active Substance: NORTRIPTYLINE
  9. OXYCONTIN [Concomitant]
     Active Substance: OXYCODONE HYDROCHLORIDE
  10. TECFIDERA [Suspect]
     Active Substance: DIMETHYL FUMARATE
     Indication: RELAPSING-REMITTING MULTIPLE SCLEROSIS
     Route: 048
     Dates: start: 20150316
  11. REGLAN [Concomitant]
     Active Substance: METOCLOPRAMIDE HYDROCHLORIDE
  12. THYROID [Concomitant]
     Active Substance: LEVOTHYROXINE\LIOTHYRONINE
  13. SYNTHROID [Concomitant]
     Active Substance: LEVOTHYROXINE SODIUM
  14. VITAMIN D [Concomitant]
     Active Substance: CHOLECALCIFEROL

REACTIONS (10)
  - Constipation [Recovered/Resolved]
  - Diarrhoea [Not Recovered/Not Resolved]
  - Pruritus [Not Recovered/Not Resolved]
  - Rash [Not Recovered/Not Resolved]
  - Hot flush [Not Recovered/Not Resolved]
  - Mood swings [Not Recovered/Not Resolved]
  - Decreased appetite [Not Recovered/Not Resolved]
  - Insomnia [Not Recovered/Not Resolved]
  - Skin burning sensation [Not Recovered/Not Resolved]
  - Thyroid cancer [Recovered/Resolved]
